FAERS Safety Report 17094093 (Version 1)
Quarter: 2019Q4

REPORT INFORMATION
  Report Type: Spontaneous
  Country: US (occurrence: US)
  Receive Date: 20191129
  Receipt Date: 20191129
  Transmission Date: 20200122
  Serious: No
  Sender: FDA-Public Use
  Company Number: US-ELI_LILLY_AND_COMPANY-US201911012901

PATIENT
  Sex: Female

DRUGS (2)
  1. TOPIRAMATE. [Concomitant]
     Active Substance: TOPIRAMATE
     Dosage: UNK
  2. EMGALITY [Suspect]
     Active Substance: GALCANEZUMAB-GNLM
     Indication: MIGRAINE
     Dosage: 1 DOSAGE FORM, UNKNOWN
     Route: 065
     Dates: start: 201908

REACTIONS (7)
  - Injection site mass [Recovered/Resolved]
  - Injection site urticaria [Recovered/Resolved]
  - Injection site pain [Unknown]
  - Sinus headache [Recovered/Resolved]
  - Anxiety [Recovered/Resolved]
  - Weight increased [Unknown]
  - Nasopharyngitis [Unknown]
